FAERS Safety Report 8886630 (Version 2)
Quarter: 2012Q4

REPORT INFORMATION
  Report Type: Report from Study
  Country: FR (occurrence: FR)
  Receive Date: 20121105
  Receipt Date: 20121126
  Transmission Date: 20130627
  Serious: Yes (Hospitalization, Other)
  Sender: FDA-Public Use
  Company Number: FR-CELGENEUS-056-21880-12103280

PATIENT
  Age: 54 Year
  Sex: Male

DRUGS (3)
  1. REVLIMID [Suspect]
     Indication: MYELOMA
     Route: 048
     Dates: start: 20120803
  2. BORTEZOMIB [Suspect]
     Indication: MYELOMA
     Route: 065
     Dates: start: 20120803
  3. DEXAMETHASONE [Suspect]
     Indication: MYELOMA
     Route: 065
     Dates: start: 20120803

REACTIONS (2)
  - Neuropathy peripheral [Not Recovered/Not Resolved]
  - Myopathy [Not Recovered/Not Resolved]
